FAERS Safety Report 13162623 (Version 2)
Quarter: 2017Q2

REPORT INFORMATION
  Report Type: Spontaneous
  Country: GB (occurrence: GB)
  Receive Date: 20170130
  Receipt Date: 20170406
  Transmission Date: 20170830
  Serious: Yes (Other)
  Sender: FDA-Public Use
  Company Number: GB-PFIZER INC-2017037140

PATIENT
  Age: 19 Year
  Sex: Male

DRUGS (2)
  1. SUMATRIPTAN SUCCINATE. [Suspect]
     Active Substance: SUMATRIPTAN SUCCINATE
     Indication: HEADACHE
     Dosage: 50 MG, SINGLE DOSE
     Route: 048
  2. SUMATRIPTAN SUCCINATE. [Suspect]
     Active Substance: SUMATRIPTAN SUCCINATE
     Indication: NAUSEA

REACTIONS (1)
  - IIIrd nerve paresis [Recovered/Resolved]
